FAERS Safety Report 12854901 (Version 1)
Quarter: 2016Q4

REPORT INFORMATION
  Report Type: Report from Study
  Country: CA (occurrence: CA)
  Receive Date: 20161017
  Receipt Date: 20161017
  Transmission Date: 20170207
  Serious: Yes (Other)
  Sender: FDA-Public Use
  Company Number: CA-JNJFOC-20161010858

PATIENT
  Age: 42 Year
  Weight: 54 kg

DRUGS (2)
  1. REMICADE [Suspect]
     Active Substance: INFLIXIMAB
     Indication: CROHN^S DISEASE
     Route: 042
  2. IMURAN [Concomitant]
     Active Substance: AZATHIOPRINE
     Indication: CROHN^S DISEASE
     Route: 048

REACTIONS (5)
  - Off label use [Unknown]
  - Vertigo [Recovering/Resolving]
  - Urticaria [Recovered/Resolved]
  - Product use issue [Unknown]
  - Dental care [Unknown]

NARRATIVE: CASE EVENT DATE: 20160910
